FAERS Safety Report 9023949 (Version 5)
Quarter: 2013Q2

REPORT INFORMATION
  Report Type: Spontaneous
  Country: US (occurrence: US)
  Receive Date: 20130121
  Receipt Date: 20130610
  Transmission Date: 20140414
  Serious: Yes (Hospitalization, Other)
  Sender: FDA-Public Use
  Company Number: US-PFIZER INC-2013021902

PATIENT
  Age: 58 Year
  Sex: Male
  Weight: 145.12 kg

DRUGS (4)
  1. SUTENT [Suspect]
     Indication: RENAL CELL CARCINOMA
     Dosage: 50 MG DAILY, CYCLIC
     Dates: start: 20121214
  2. SUTENT [Suspect]
     Dosage: 50 MG, UNK
     Dates: start: 20130405
  3. ALLOPURINOL [Concomitant]
     Indication: BLOOD URIC ACID INCREASED
     Dosage: 300 MG, DAILY
  4. UROCIT-K [Concomitant]
     Indication: BLOOD URIC ACID INCREASED
     Dosage: 1080 MG, 2X/DAY

REACTIONS (6)
  - Local swelling [Unknown]
  - Swelling face [Recovering/Resolving]
  - Laryngeal discomfort [Unknown]
  - Fatigue [Unknown]
  - Gastrooesophageal reflux disease [Unknown]
  - Diarrhoea [Unknown]
